FAERS Safety Report 8865472 (Version 1)
Quarter: 2012Q4

REPORT INFORMATION
  Report Type: 
  Country: US (occurrence: US)
  Receive Date: 20121024
  Receipt Date: 20121024
  Transmission Date: 20130627
  Serious: Yes (Hospitalization)
  Sender: FDA-Public Use
  Company Number: US-AMGEN-USASP2012003270

PATIENT
  Age: 47 Year
  Sex: Male
  Weight: 108.84 kg

DRUGS (14)
  1. ENBREL [Suspect]
     Indication: PRODUCT USED FOR UNKNOWN INDICATION
     Dosage: 50 mg, qwk
     Route: 058
  2. TRICOR                             /00499301/ [Concomitant]
     Dosage: 48 mg, UNK
     Route: 048
  3. EFFIENT [Concomitant]
     Dosage: 5 mg, UNK
     Route: 048
  4. NEXIUM                             /01479302/ [Concomitant]
     Dosage: 20 mg, UNK
     Route: 048
  5. ATENOLOL [Concomitant]
     Dosage: 50 mg, UNK
     Route: 048
  6. LISINOPRIL [Concomitant]
     Dosage: 10 mg, UNK
     Route: 048
  7. ECOTRIN [Concomitant]
     Dosage: 325 mg, UNK
     Route: 048
  8. CRESTOR [Concomitant]
     Dosage: 10 mg, UNK
     Route: 048
  9. FISH OIL [Concomitant]
     Route: 048
  10. SYNTHROID [Concomitant]
     Dosage: 100 mug, UNK
     Route: 048
  11. ANDROGEL [Concomitant]
     Dosage: 25 mg, UNK
  12. ALLEGRA [Concomitant]
     Dosage: 60 mg, UNK
     Route: 048
  13. LEVITRA [Concomitant]
     Dosage: 10 mg, UNK
     Route: 048
  14. SKELAXIN                           /00611501/ [Concomitant]
     Dosage: 800 mg, UNK
     Route: 048

REACTIONS (5)
  - Bronchitis [Recovered/Resolved]
  - Feeling drunk [Not Recovered/Not Resolved]
  - Lethargy [Not Recovered/Not Resolved]
  - Tunnel vision [Not Recovered/Not Resolved]
  - Nasopharyngitis [Recovered/Resolved]
